FAERS Safety Report 6895286-8 (Version None)
Quarter: 2010Q3

REPORT INFORMATION
  Report Type: 
  Country: None (occurrence: None)
  Receive Date: 20100802
  Receipt Date: 20100728
  Transmission Date: 20110219
  Serious: Yes (Hospitalization)
  Sender: FDA-Public Use
  Company Number: DE-MERCK-1005DEU00084

PATIENT
  Age: 73 Year
  Sex: Female

DRUGS (4)
  1. FOSAMAX [Suspect]
     Indication: OSTEOPOROSIS
     Route: 048
     Dates: start: 20010101, end: 20040101
  2. FOSAMAX [Suspect]
     Route: 048
     Dates: start: 20060601, end: 20080901
  3. FOSAMAX [Suspect]
     Route: 048
     Dates: start: 20090501, end: 20090901
  4. CALCIUM GLUCONATE AND CALCIUM PHOSPHATE TRIBASIC AND CHOLECALCIFEROL [Concomitant]
     Indication: OSTEOPOROSIS
     Route: 048
     Dates: start: 19940101, end: 20090901

REACTIONS (3)
  - DRUG INTOLERANCE [None]
  - FEMUR FRACTURE [None]
  - PATELLA FRACTURE [None]
